FAERS Safety Report 21902075 (Version 1)
Quarter: 2023Q1

REPORT INFORMATION
  Report Type: Spontaneous
  Country: CA (occurrence: None)
  Receive Date: 20230124
  Receipt Date: 20230124
  Transmission Date: 20230417
  Serious: Yes (Hospitalization)
  Sender: FDA-Public Use
  Company Number: CA-ROCHE-3269564

PATIENT
  Age: 2 Year
  Sex: Male
  Weight: 13 kg

DRUGS (4)
  1. RITUXIMAB [Suspect]
     Active Substance: RITUXIMAB
     Indication: Nephrotic syndrome
     Route: 041
  2. TACROLIMUS [Concomitant]
     Active Substance: TACROLIMUS
  3. FLUOCINONIDE [Concomitant]
     Active Substance: FLUOCINONIDE
  4. ACETAMINOPHEN [Concomitant]
     Active Substance: ACETAMINOPHEN

REACTIONS (9)
  - Cough [Recovered/Resolved]
  - Febrile neutropenia [Recovered/Resolved]
  - Mouth ulceration [Recovered/Resolved]
  - Papule [Recovered/Resolved]
  - Petechiae [Recovered/Resolved]
  - Pharyngeal erythema [Recovered/Resolved]
  - Post-tussive vomiting [Recovered/Resolved]
  - Rhinorrhoea [Recovered/Resolved]
  - Tongue ulceration [Recovered/Resolved]
